FAERS Safety Report 16265823 (Version 1)
Quarter: 2019Q2

REPORT INFORMATION
  Report Type: Report from Study
  Country: US (occurrence: US)
  Receive Date: 20190502
  Receipt Date: 20190502
  Transmission Date: 20190711
  Serious: Yes (Other)
  Sender: FDA-Public Use
  Company Number: US-TEVA-2019-US-1043674

PATIENT

DRUGS (1)
  1. LOPERAMIDE [Suspect]
     Active Substance: LOPERAMIDE
     Indication: INTENTIONAL SELF-INJURY
     Dosage: DOSE ADMINISTERED 200MG OR GREATER
     Route: 048

REACTIONS (3)
  - Electrocardiogram QT prolonged [Unknown]
  - Intentional overdose [Unknown]
  - Toxicity to various agents [Unknown]
